FAERS Safety Report 4869755-6 (Version None)
Quarter: 2005Q4

REPORT INFORMATION
  Report Type: 
  Country: None (occurrence: None)
  Receive Date: 20051223
  Receipt Date: 20051214
  Transmission Date: 20060501
  Serious: Yes (Other)
  Sender: FDA-Public Use
  Company Number: 219899

PATIENT
  Age: 63 Year
  Sex: Female

DRUGS (4)
  1. RAPTIVA [Suspect]
     Indication: PSORIASIS
  2. METHOTREXATE [Concomitant]
  3. DEXAMETHASONE [Concomitant]
  4. GCSF OR GMCSF (FILGRASTIM SARGRAMOSTIM) [Concomitant]

REACTIONS (5)
  - ACUTE MYELOID LEUKAEMIA [None]
  - MONOCYTE COUNT INCREASED [None]
  - NEUTROPENIA [None]
  - SHIFT TO THE LEFT [None]
  - WHITE BLOOD CELL COUNT DECREASED [None]
